FAERS Safety Report 8013131-4 (Version None)
Quarter: 2011Q4

REPORT INFORMATION
  Report Type: 
  Country: None (occurrence: None)
  Receive Date: 20111229
  Receipt Date: 20111222
  Transmission Date: 20120403
  Serious: Yes (Hospitalization, Other)
  Sender: FDA-Public Use
  Company Number: JP-CEPHALON-2011001420

PATIENT
  Sex: Male
  Weight: 63 kg

DRUGS (15)
  1. BENDAMUSTINE HCL [Suspect]
     Indication: B-CELL LYMPHOMA
     Route: 041
     Dates: start: 20110310, end: 20110422
  2. VALACICLOVIR HCL [Concomitant]
     Dates: start: 20110310, end: 20110517
  3. CARVEDILOL [Concomitant]
  4. CLOSTRIDIUM BUTYRICUM [Concomitant]
     Dates: start: 20110621, end: 20110707
  5. LEVOFLOXACINC [Concomitant]
     Dates: start: 20110317, end: 20110326
  6. LENOGRASTIM [Concomitant]
     Dates: start: 20110317, end: 20110323
  7. HYDROCORTISONE SODIUM SUCCINATE [Concomitant]
     Dates: start: 20110310, end: 20110421
  8. LACTOMIN [Concomitant]
     Dates: start: 20110621
  9. BENDAMUSTINE HCL [Suspect]
     Route: 042
     Dates: start: 20110421, end: 20110422
  10. RITUXIMAB [Concomitant]
     Indication: B-CELL LYMPHOMA
     Dates: start: 20110310, end: 20110421
  11. SULFAMETHOXAZOLE AND TRIMETHOPRIM [Concomitant]
     Dates: start: 20110310, end: 20110517
  12. GRANISETRON HCL [Concomitant]
     Dates: start: 20110310, end: 20110422
  13. ALBUMIN TANNATE [Concomitant]
     Dates: start: 20110621, end: 20110707
  14. DEXAMETHASONE SODIUM PHOSPHATE [Concomitant]
     Dates: start: 20110310, end: 20110421
  15. LORATADINE [Concomitant]
     Dates: end: 20110517

REACTIONS (8)
  - FEBRILE NEUTROPENIA [None]
  - NEUTROPHIL COUNT DECREASED [None]
  - BLOOD BILIRUBIN INCREASED [None]
  - LYMPHOCYTE COUNT DECREASED [None]
  - WHITE BLOOD CELL COUNT DECREASED [None]
  - CYTOMEGALOVIRUS INFECTION [None]
  - DIARRHOEA [None]
  - PHLEBITIS [None]
